FAERS Safety Report 21875555 (Version 1)
Quarter: 2023Q1

REPORT INFORMATION
  Report Type: Spontaneous
  Country: CA (occurrence: CA)
  Receive Date: 20230118
  Receipt Date: 20230118
  Transmission Date: 20230417
  Serious: Yes (Life-Threatening, Hospitalization)
  Sender: FDA-Public Use
  Company Number: CA-MACLEODS PHARMACEUTICALS US LTD-MAC2023039304

PATIENT

DRUGS (10)
  1. QUETIAPINE [Suspect]
     Active Substance: QUETIAPINE
     Indication: Product used for unknown indication
     Dosage: UNK
     Route: 065
  2. HALOPERIDOL [Suspect]
     Active Substance: HALOPERIDOL
     Indication: Agitation
     Dosage: 1 MILLIGRAM
     Route: 065
  3. HALOPERIDOL [Suspect]
     Active Substance: HALOPERIDOL
     Dosage: 3 MILLIGRAM
     Route: 065
  4. LORAZEPAM [Suspect]
     Active Substance: LORAZEPAM
     Indication: Aggression
     Dosage: 5 MILLIGRAM
     Route: 065
  5. LORAZEPAM [Suspect]
     Active Substance: LORAZEPAM
     Dosage: 4 MILLIGRAM
     Route: 065
  6. MIDAZOLAM [Suspect]
     Active Substance: MIDAZOLAM
     Indication: Status epilepticus
     Dosage: 6.5 MILLIGRAM
     Route: 065
  7. MIDAZOLAM [Suspect]
     Active Substance: MIDAZOLAM
     Dosage: UNK, 8MG/H
     Route: 065
  8. PROPOFOL [Suspect]
     Active Substance: PROPOFOL
     Indication: Anaesthetic complication
     Dosage: 320 MILLIGRAM
     Route: 065
  9. PHENYTOIN [Suspect]
     Active Substance: PHENYTOIN
     Indication: Status epilepticus
     Dosage: 1.5 GRAM
     Route: 065
  10. Pramipexole 0.5 mg [Concomitant]
     Indication: Restless legs syndrome
     Dosage: 0.5 MILLIGRAM
     Route: 065

REACTIONS (2)
  - Disease recurrence [Recovered/Resolved]
  - Dystonia [Recovered/Resolved]
